FAERS Safety Report 6254262-9 (Version None)
Quarter: 2009Q2

REPORT INFORMATION
  Report Type: 
  Country: None (occurrence: None)
  Receive Date: 20090630
  Receipt Date: 20090630
  Transmission Date: 20091009
  Serious: Yes (Other)
  Sender: FDA-Public Use
  Company Number: None

PATIENT
  Sex: Male
  Weight: 99.7913 kg

DRUGS (2)
  1. ABILIFY [Suspect]
     Indication: BIPOLAR DISORDER
     Dosage: 15MG 2X DAILY PO
     Route: 048
     Dates: start: 20070601, end: 20090601
  2. ABILIFY [Suspect]
     Indication: SCHIZOPHRENIA
     Dosage: 15MG 2X DAILY PO
     Route: 048
     Dates: start: 20070601, end: 20090601

REACTIONS (1)
  - TARDIVE DYSKINESIA [None]
